FAERS Safety Report 9210640 (Version 4)
Quarter: 2014Q4

REPORT INFORMATION
  Report Type: Spontaneous
  Country: US (occurrence: US)
  Receive Date: 20130404
  Receipt Date: 20141030
  Transmission Date: 20150529
  Serious: No
  Sender: FDA-Public Use
  Company Number: US-009507513-1304USA001689

PATIENT
  Sex: Female

DRUGS (1)
  1. FOSAMAX PLUS D [Suspect]
     Active Substance: ALENDRONATE SODIUM\CHOLECALCIFEROL
     Dosage: STRENGHT: 70MG/2800IU. 1 TABLET BY MOUTH ONCE A WEEK
     Route: 048

REACTIONS (5)
  - Product quality issue [Unknown]
  - Biopsy [Unknown]
  - Adverse event [Not Recovered/Not Resolved]
  - Oesophageal pain [Recovered/Resolved]
  - Poor quality drug administered [Unknown]
